FAERS Safety Report 14337182 (Version 2)
Quarter: 2018Q1

REPORT INFORMATION
  Report Type: Spontaneous
  Country: BR (occurrence: BR)
  Receive Date: 20171229
  Receipt Date: 20180116
  Transmission Date: 20180509
  Serious: Yes (Other)
  Sender: FDA-Public Use
  Company Number: BR-ASTRAZENECA-2017SF31112

PATIENT
  Age: 65 Year
  Sex: Female

DRUGS (3)
  1. VITAMINS NOS [Concomitant]
     Active Substance: VITAMINS
  2. XIGDUO XR [Suspect]
     Active Substance: DAPAGLIFLOZIN PROPANEDIOL\METFORMIN HYDROCHLORIDE
     Indication: HYPERGLYCAEMIA
     Route: 048
     Dates: start: 20171126, end: 201712
  3. NESINA PIO [Concomitant]

REACTIONS (6)
  - Metastases to liver [Unknown]
  - Occult blood [Not Recovered/Not Resolved]
  - Pancreatic carcinoma metastatic [Unknown]
  - Insomnia [Not Recovered/Not Resolved]
  - Hepatitis [Recovered/Resolved]
  - Jaundice [Recovered/Resolved]

NARRATIVE: CASE EVENT DATE: 201712
